FAERS Safety Report 20720530 (Version 2)
Quarter: 2022Q2

REPORT INFORMATION
  Report Type: Other
  Country: US (occurrence: None)
  Receive Date: 20220418
  Receipt Date: 20220517
  Transmission Date: 20220721
  Serious: No
  Sender: FDA-Public Use
  Company Number: US-ROCHE-3071565

PATIENT
  Sex: Female

DRUGS (4)
  1. HERCEPTIN [Suspect]
     Active Substance: TRASTUZUMAB
     Indication: Breast cancer metastatic
     Route: 065
  2. HERCEPTIN [Suspect]
     Active Substance: TRASTUZUMAB
     Indication: Metastases to central nervous system
  3. XELODA [Suspect]
     Active Substance: CAPECITABINE
     Indication: Breast cancer metastatic
     Dosage: TAKE 1950MG (THREE 500MG AND THREE 150MG) TWICE A DAY  14 DAYS ON + 7 DAYS OFF
     Route: 048
  4. XELODA [Suspect]
     Active Substance: CAPECITABINE
     Indication: Metastases to central nervous system
     Dosage: TAKE 1950MG (THREE 500MG AND THREE 150MG) TWICE A DAY  14 DAYS ON + 7 DAYS OFF
     Route: 048

REACTIONS (2)
  - Product dispensing error [Unknown]
  - No adverse event [Unknown]
